FAERS Safety Report 9399928 (Version 2)
Quarter: 2013Q3

REPORT INFORMATION
  Report Type: Report from Study
  Country: GB (occurrence: GB)
  Receive Date: 20130715
  Receipt Date: 20130830
  Transmission Date: 20140515
  Serious: Yes (Life-Threatening, Hospitalization)
  Sender: FDA-Public Use
  Company Number: GB-ROCHE-1248846

PATIENT
  Age: 92 Year
  Sex: Female

DRUGS (10)
  1. RANIBIZUMAB [Suspect]
     Indication: AGE-RELATED MACULAR DEGENERATION
     Route: 050
     Dates: start: 20110713
  2. RANIBIZUMAB [Suspect]
     Route: 050
     Dates: start: 20130403
  3. RANIBIZUMAB [Suspect]
     Route: 050
     Dates: start: 20130710, end: 20130710
  4. ADCAL - D3 [Concomitant]
  5. AMITRIPTYLINE [Concomitant]
  6. CLOPIDOGREL [Concomitant]
  7. FUROSEMIDE [Concomitant]
  8. SILDENAFIL CITRATE [Concomitant]
  9. RAMIPRIL [Concomitant]
  10. TRITACE [Concomitant]

REACTIONS (1)
  - Cerebrovascular accident [Recovered/Resolved with Sequelae]
